FAERS Safety Report 12669671 (Version 1)
Quarter: 2016Q3

REPORT INFORMATION
  Report Type: Report from Study
  Country: BE (occurrence: BE)
  Receive Date: 20160819
  Receipt Date: 20160819
  Transmission Date: 20161109
  Serious: Yes (Hospitalization)
  Sender: FDA-Public Use
  Company Number: BE-ABBVIE-16K-013-1673196-00

PATIENT
  Age: 81 Year
  Sex: Male

DRUGS (9)
  1. DUODOPA [Suspect]
     Active Substance: CARBIDOPA\LEVODOPA
     Dosage: AM= 6 ML; CD= 3.5 ML/H DURING 16 HRS; ED= 1.5 ML
     Route: 050
     Dates: start: 20160704, end: 20160808
  2. DUODOPA [Suspect]
     Active Substance: CARBIDOPA\LEVODOPA
     Dosage: AM: 6ML; CD: 3.5ML/H FOR 16 HRS; ED: 1.5ML
     Route: 050
     Dates: start: 20160811
  3. DUODOPA [Suspect]
     Active Substance: CARBIDOPA\LEVODOPA
     Dosage: AM= 6 ML; CD= 3.5 ML/H DURING 16 HRS; ED= 1.5 ML
     Route: 050
     Dates: start: 20160808, end: 20160811
  4. STALEVO [Concomitant]
     Active Substance: CARBIDOPA\ENTACAPONE\LEVODOPA
     Indication: PRODUCT USED FOR UNKNOWN INDICATION
     Dosage: FORM STRENGTH: 200MG/50MG/200MG
     Route: 048
  5. DUODOPA [Suspect]
     Active Substance: CARBIDOPA\LEVODOPA
     Dosage: DOSES CONTINUOUSLY MONITORED AND ADAPTED
     Route: 050
     Dates: start: 20130910, end: 20140828
  6. STALEVO [Concomitant]
     Active Substance: CARBIDOPA\ENTACAPONE\LEVODOPA
     Dosage: FORM STRENGTH: 200MG/50MG/200MG, 4/DAY AS RESCUE MEDICATION
  7. DUODOPA [Suspect]
     Active Substance: CARBIDOPA\LEVODOPA
     Indication: PARKINSON^S DISEASE
     Dosage: AM= 6 ML; CD= 3.2 ML/H DURING 16 HRS; ED= 1 ML
     Route: 050
     Dates: start: 20130204, end: 20130910
  8. DUODOPA [Suspect]
     Active Substance: CARBIDOPA\LEVODOPA
     Dosage: AM= 6 ML; CD= 3.5 ML/H DURING 16 HRS; ED= 1.5 ML
     Route: 050
     Dates: start: 20140828, end: 20160704
  9. DUODOPA [Suspect]
     Active Substance: CARBIDOPA\LEVODOPA
     Dosage: AM= 6 ML; CD= 3.5 ML/H DURING 16 HRS; ED= 1.5 ML
     Route: 050
     Dates: start: 20160704, end: 20160704

REACTIONS (5)
  - Incorrect route of drug administration [Recovered/Resolved]
  - Incorrect route of drug administration [Recovered/Resolved]
  - Device occlusion [Recovered/Resolved]
  - Device occlusion [Recovered/Resolved]
  - Device kink [Recovered/Resolved]

NARRATIVE: CASE EVENT DATE: 20160704
